FAERS Safety Report 8830085 (Version 1)
Quarter: 2012Q4

REPORT INFORMATION
  Report Type: 
  Country: US (occurrence: US)
  Receive Date: 20121008
  Receipt Date: 20121008
  Transmission Date: 20130627
  Serious: Yes (Other)
  Sender: FDA-Public Use
  Company Number: US-PFIZER INC-2012246434

PATIENT
  Age: 62 Year
  Sex: Male
  Weight: 74.83 kg

DRUGS (1)
  1. LYRICA [Suspect]
     Indication: PROCEDURAL PAIN
     Dosage: 25 mg, 1x/day

REACTIONS (3)
  - Gastrooesophageal reflux disease [Not Recovered/Not Resolved]
  - Blood glucose increased [Not Recovered/Not Resolved]
  - Insomnia [Not Recovered/Not Resolved]
